FAERS Safety Report 13759236 (Version 1)
Quarter: 2017Q3

REPORT INFORMATION
  Report Type: Spontaneous
  Country: US (occurrence: US)
  Receive Date: 20170717
  Receipt Date: 20170717
  Transmission Date: 20171127
  Serious: Yes (Other)
  Sender: FDA-Public Use
  Company Number: None

PATIENT
  Age: 8 Year
  Sex: Male
  Weight: 29.25 kg

DRUGS (2)
  1. MONTELUKAST [Suspect]
     Active Substance: MONTELUKAST SODIUM
     Indication: ASTHMA
     Dates: start: 20160424, end: 20170424
  2. OTC CENTRUM CHILDREN^S VITAMINS [Concomitant]

REACTIONS (8)
  - Sleep disorder [None]
  - Enuresis [None]
  - Suicidal ideation [None]
  - Depression [None]
  - Contusion [None]
  - Feeling abnormal [None]
  - Anxiety [None]
  - Mood swings [None]

NARRATIVE: CASE EVENT DATE: 20160425
